FAERS Safety Report 9000820 (Version 1)
Quarter: 2013Q1

REPORT INFORMATION
  Report Type: Spontaneous
  Country: US (occurrence: US)
  Receive Date: 20130107
  Receipt Date: 20130107
  Transmission Date: 20140127
  Serious: No
  Sender: FDA-Public Use
  Company Number: US-COVIDIEN/TYCO HEALTHCARE/MALLINCKRODT-T201202486

PATIENT
  Age: 43 Year
  Sex: Male

DRUGS (5)
  1. OPTIRAY [Suspect]
     Indication: COMPUTERISED TOMOGRAM
     Dosage: 100 ML, SINGLE
     Route: 042
     Dates: start: 20120604, end: 20120604
  2. BENADRYL                           /00000402/ [Concomitant]
     Indication: PREMEDICATION
     Dosage: PREMEDICATION DAY BEFORE TESTING
     Route: 048
     Dates: start: 20120603
  3. BENADRYL                           /00000402/ [Concomitant]
     Dosage: PREMEDICATION DAY OF TESTING
     Route: 048
     Dates: start: 20120604
  4. STEROID [Concomitant]
     Indication: PREMEDICATION
     Dosage: PREMEDICATION DAY BEFORE TESTING
     Dates: start: 20120603
  5. STEROID [Concomitant]
     Dosage: PREMEDICATION DAY OF TESTING
     Dates: start: 20120604

REACTIONS (3)
  - Eye pruritus [Recovered/Resolved]
  - Pruritus [Recovered/Resolved]
  - Urticaria [Recovered/Resolved]
